FAERS Safety Report 4343712-0 (Version None)
Quarter: 2004Q2

REPORT INFORMATION
  Report Type: 
  Country: None (occurrence: None)
  Receive Date: 20040419
  Receipt Date: 20040407
  Transmission Date: 20050107
  Serious: Yes (Hospitalization)
  Sender: FDA-Public Use
  Company Number: HQWYE405109APR04

PATIENT
  Age: 45 Year
  Sex: Male
  Weight: 64.8 kg

DRUGS (15)
  1. RAPAMUNE [Suspect]
     Indication: PROPHYLAXIS AGAINST TRANSPLANT REJECTION
     Dosage: SEE IMAGE
     Route: 048
     Dates: start: 20040330, end: 20040331
  2. RAPAMUNE [Suspect]
     Indication: PROPHYLAXIS AGAINST TRANSPLANT REJECTION
     Dosage: SEE IMAGE
     Route: 048
     Dates: start: 20040403, end: 20040401
  3. RAPAMUNE [Suspect]
     Indication: PROPHYLAXIS AGAINST TRANSPLANT REJECTION
     Dosage: SEE IMAGE
     Route: 048
     Dates: start: 20040401
  4. PREDNISONE [Concomitant]
  5. PENTAMIDINE (PENTAMIDINE) [Concomitant]
  6. ZESTRIL [Concomitant]
  7. TRANDATE [Concomitant]
  8. CARDIZEM [Concomitant]
  9. HYDRALAZINE HCL TAB [Concomitant]
  10. COZAAR [Concomitant]
  11. CLONIDINE [Concomitant]
  12. EPOGEN [Concomitant]
  13. IRON (IRON) [Concomitant]
  14. RENAGEL (SEVELAMER) [Concomitant]
  15. UNSPECIFIED CALCIUM SUPPLEMENT (UNSPECIFIED CALCIUM SUPPLEMENT) [Concomitant]

REACTIONS (4)
  - ACCIDENTAL OVERDOSE [None]
  - GRAFT DYSFUNCTION [None]
  - HAEMODIALYSIS [None]
  - THROMBOCYTOPENIA [None]
